FAERS Safety Report 5151128-2 (Version None)
Quarter: 2006Q4

REPORT INFORMATION
  Report Type: 
  Country: None (occurrence: None)
  Receive Date: 20061115
  Receipt Date: 20061108
  Transmission Date: 20070319
  Serious: Yes (Death)
  Sender: FDA-Public Use
  Company Number: PHBS2006RO17442

PATIENT
  Age: 67 Year
  Sex: Male

DRUGS (3)
  1. EXELON [Suspect]
     Indication: DEMENTIA
     Dosage: 6 MG/D
     Route: 048
     Dates: start: 20050707
  2. DEPAKENE [Suspect]
     Dosage: 500 MG/D
     Route: 065
     Dates: start: 20060703
  3. WELLBUTRIN [Suspect]
     Dosage: 150 MG/D
     Route: 065
     Dates: start: 20060703

REACTIONS (1)
  - DEATH [None]
